FAERS Safety Report 7299383-7 (Version None)
Quarter: 2011Q1

REPORT INFORMATION
  Report Type: 
  Country: None (occurrence: None)
  Receive Date: 20110217
  Receipt Date: 20110207
  Transmission Date: 20110831
  Serious: Yes (Hospitalization)
  Sender: FDA-Public Use
  Company Number: B0696607A

PATIENT
  Age: 56 Year
  Sex: Male

DRUGS (3)
  1. PREDNISOLONE [Concomitant]
     Indication: SARCOIDOSIS
     Dosage: 6MG PER DAY
  2. SERETIDE [Suspect]
     Route: 055
  3. FLUTIDE [Suspect]
     Route: 055

REACTIONS (8)
  - CHEST X-RAY ABNORMAL [None]
  - PYREXIA [None]
  - PNEUMONIA INFLUENZAL [None]
  - H1N1 INFLUENZA [None]
  - DYSPNOEA [None]
  - WHEEZING [None]
  - LUNG DISORDER [None]
  - MALAISE [None]
